FAERS Safety Report 24366202 (Version 1)
Quarter: 2024Q3

REPORT INFORMATION
  Report Type: Spontaneous
  Country: GB (occurrence: GB)
  Receive Date: 20240926
  Receipt Date: 20240926
  Transmission Date: 20241016
  Serious: Yes (Other)
  Sender: MYLAN
  Company Number: None

PATIENT
  Age: 79 Year

DRUGS (13)
  1. MIRTAZAPINE [Suspect]
     Active Substance: MIRTAZAPINE
     Indication: Product used for unknown indication
     Dosage: 30 MILLIGRAM, QD (30MG ON)
     Route: 065
  2. ASPIRIN [Suspect]
     Active Substance: ASPIRIN
     Indication: Product used for unknown indication
     Dosage: 75 MILLIGRAM, QD (75MG OD)
     Route: 065
  3. AMLODIPINE [Concomitant]
     Active Substance: AMLODIPINE BESYLATE
     Dosage: 10 MILLIGRAM, QD (10 MG TABLETS ONE TO BE TAKEN EACH DAY)
     Route: 065
  4. COCODAMOL [Concomitant]
     Active Substance: ACETAMINOPHEN\CODEINE PHOSPHATE
     Dosage: UNK (30 MG / 500 MG TABLETS ONE OR TWO TO BE TAKEN FOUR TIMES A DAY WHEN REQUIRED)
     Route: 065
  5. ATORVASTATIN [Concomitant]
     Active Substance: ATORVASTATIN
     Dosage: 80 MILLIGRAM, QD (80 MG TABLETS ONE TO BE TAKEN EACH DAY)
     Route: 065
  6. DOXAZOSIN [Concomitant]
     Active Substance: DOXAZOSIN MESYLATE
     Dosage: 8 MILLIGRAM, BID (8 MG TABLETS ONE TO BE TAKEN TWICE A DAY)
     Route: 065
  7. CHOLECALCIFEROL [Concomitant]
     Active Substance: CHOLECALCIFEROL
     Dosage: 1.25 GRAM, QD (400 UNIT / CALCIUM CARBONATE 1.25 G CHEWABLE TAB 1 TO BE TAKEN EACH DAY-THIS IS THE S
     Route: 065
  8. Spikevax XBB.1.5 [Concomitant]
     Dosage: UNK (COVID-19 MRNA VACCINE 0.1 MG / 1 ML DISPERSION FOR INJECTION MULTIDOSE VIALS 0.5 ML IM 0.5 ML)
     Route: 030
     Dates: start: 20240430, end: 20240430
  9. VITAMINS [Concomitant]
     Active Substance: VITAMINS
     Dosage: UNK
     Route: 065
  10. OMEPRAZOLE [Concomitant]
     Active Substance: OMEPRAZOLE
     Dosage: 20 MILLIGRAM, QD (20 MG GASTRO-RESISTANT CAPSULES ONE TO BE TAKEN EACH DAY)
     Route: 065
  11. SOTALOL [Concomitant]
     Active Substance: SOTALOL\SOTALOL HYDROCHLORIDE
     Dosage: 80 MILLIGRAM, BID (80 MG TABLETS ONE TO BE TAKEN TWICE A DAY)
     Route: 065
  12. SPIRIVA RESPIMAT [Concomitant]
     Active Substance: TIOTROPIUM BROMIDE
     Dosage: 2 DOSAGE FORM, QD (2.5 MCG/ DOSE INHALATION SOLUTION CARTRIDGE WITH DEVICE 2 PUFFS TO BE INHALED ONC
     Route: 055
  13. RAMIPRIL [Concomitant]
     Active Substance: RAMIPRIL
     Dosage: 10 MILLIGRAM, QD (10 MG CAPSULES ONE TO BE TAKEN EACH DAY)
     Route: 065

REACTIONS (1)
  - Gastrointestinal haemorrhage [Unknown]
